FAERS Safety Report 16122347 (Version 1)
Quarter: 2019Q1

REPORT INFORMATION
  Report Type: Spontaneous
  Country: BE (occurrence: BE)
  Receive Date: 20190327
  Receipt Date: 20190327
  Transmission Date: 20190418
  Serious: Yes (Hospitalization, Other)
  Sender: FDA-Public Use
  Company Number: PHHY2019BE065175

PATIENT
  Age: 63 Year
  Sex: Female
  Weight: 57 kg

DRUGS (15)
  1. FOLINATE CALCIUM [Suspect]
     Active Substance: LEUCOVORIN CALCIUM
     Indication: PANCREATIC CARCINOMA METASTATIC
     Dosage: 660 MG, CYCLIC
     Route: 042
     Dates: start: 20180628, end: 20180628
  2. CLEXANE [Concomitant]
     Active Substance: ENOXAPARIN SODIUM
     Indication: DEEP VEIN THROMBOSIS
     Dosage: UNK
     Route: 065
  3. FLUOROURACIL. [Suspect]
     Active Substance: FLUOROURACIL
     Indication: PANCREATIC CARCINOMA METASTATIC
     Dosage: 660 MG, QCY
     Route: 042
     Dates: start: 20180628, end: 20180628
  4. OXYNORM [Concomitant]
     Active Substance: OXYCODONE HYDROCHLORIDE
     Indication: BACK PAIN
     Dosage: UNK
     Route: 065
  5. FOLINATE CALCIUM [Suspect]
     Active Substance: LEUCOVORIN CALCIUM
     Dosage: 660 MG, CYCLIC
     Route: 042
     Dates: start: 20181220, end: 20181220
  6. MATRIFEN [Concomitant]
     Active Substance: FENTANYL
     Indication: BACK PAIN
     Dosage: UNK
     Route: 065
  7. OMEPRAZOLE. [Concomitant]
     Active Substance: OMEPRAZOLE
     Indication: PROPHYLAXIS
     Dosage: UNK
     Route: 065
  8. LITICAN [Concomitant]
     Active Substance: ALIZAPRIDE HYDROCHLORIDE
     Indication: NAUSEA
     Dosage: UNK
     Route: 065
  9. OXALIPLATIN. [Suspect]
     Active Substance: OXALIPLATIN
     Dosage: 140.25 MG, CYCLIC
     Route: 058
     Dates: start: 20180628, end: 20180628
  10. OXALIPLATIN. [Suspect]
     Active Substance: OXALIPLATIN
     Dosage: 140.25 MG, CYCLIC
     Route: 058
     Dates: start: 20181220
  11. FLUOROURACIL. [Suspect]
     Active Substance: FLUOROURACIL
     Dosage: 3960 MG, CYCLIC
     Route: 040
     Dates: start: 20180628, end: 20180628
  12. FLUOROURACIL. [Suspect]
     Active Substance: FLUOROURACIL
     Dosage: 3960 MG, CYCLIC
     Route: 040
     Dates: start: 20181222, end: 20181222
  13. OXALIPLATIN. [Suspect]
     Active Substance: OXALIPLATIN
     Indication: PANCREATIC CARCINOMA METASTATIC
     Dosage: 0.4 MG, CYCLIC
     Route: 058
     Dates: start: 20180628, end: 20180628
  14. LITICAN [Concomitant]
     Active Substance: ALIZAPRIDE HYDROCHLORIDE
     Indication: CHEMOTHERAPY
  15. FLUOROURACIL. [Suspect]
     Active Substance: FLUOROURACIL
     Dosage: 660 MG, CYCLIC
     Route: 042
     Dates: start: 20181222, end: 20181222

REACTIONS (8)
  - Endoscopic retrograde cholangiopancreatography [Unknown]
  - Cholangitis [Not Recovered/Not Resolved]
  - Ascites [Unknown]
  - Gastrointestinal perforation [Unknown]
  - C-reactive protein increased [Unknown]
  - Myalgia [Unknown]
  - Body temperature increased [Unknown]
  - Pain [Unknown]

NARRATIVE: CASE EVENT DATE: 20190207
